FAERS Safety Report 5659534-4 (Version None)
Quarter: 2008Q1

REPORT INFORMATION
  Report Type: 
  Country: None (occurrence: None)
  Receive Date: 20080311
  Receipt Date: 20080303
  Transmission Date: 20080703
  Serious: Yes (Death, Other)
  Sender: FDA-Public Use
  Company Number: PHBS2008JP03014

PATIENT
  Age: 88 Year
  Sex: Male

DRUGS (6)
  1. GABALON [Suspect]
     Indication: MUSCLE SPASTICITY
     Dosage: 50 MCG/DAY
     Route: 037
  2. ULCERMIN [Concomitant]
  3. FAMOTIDINE [Concomitant]
  4. BISOLVON [Concomitant]
  5. AMLODIN [Concomitant]
  6. DIOVAN [Concomitant]

REACTIONS (15)
  - BLOOD CREATININE INCREASED [None]
  - ERYTHEMA [None]
  - GENERAL PHYSICAL HEALTH DETERIORATION [None]
  - HYPOTENSION [None]
  - LIFE SUPPORT [None]
  - MENTAL STATUS CHANGES [None]
  - MUSCLE SPASMS [None]
  - PURULENCE [None]
  - PYREXIA [None]
  - RENAL FAILURE [None]
  - RESPIRATORY FAILURE [None]
  - SEPSIS [None]
  - STAPHYLOCOCCAL INFECTION [None]
  - SUBCUTANEOUS ABSCESS [None]
  - TACHYCARDIA [None]
